FAERS Safety Report 7416592-4 (Version None)
Quarter: 2011Q2

REPORT INFORMATION
  Report Type: 
  Country: None (occurrence: None)
  Receive Date: 20110415
  Receipt Date: 20110407
  Transmission Date: 20111010
  Serious: Yes (Hospitalization)
  Sender: FDA-Public Use
  Company Number: US-BIOGENIDEC-2011BI011845

PATIENT
  Age: 61 Year
  Sex: Female

DRUGS (3)
  1. TYSABRI [Suspect]
     Route: 042
  2. TYSABRI [Suspect]
     Indication: MULTIPLE SCLEROSIS
     Route: 042
     Dates: start: 20101215
  3. AMPYRA [Concomitant]
     Indication: MULTIPLE SCLEROSIS
     Dates: start: 20110101, end: 20110301

REACTIONS (11)
  - SYNCOPE [None]
  - RENAL ABSCESS [None]
  - BACK PAIN [None]
  - OEDEMA PERIPHERAL [None]
  - DIARRHOEA [None]
  - VOMITING [None]
  - RENAL FAILURE ACUTE [None]
  - NEPHROLITHIASIS [None]
  - CARDIAC ARREST [None]
  - FATIGUE [None]
  - SEPSIS [None]
